FAERS Safety Report 5857908-X (Version None)
Quarter: 2008Q3

REPORT INFORMATION
  Report Type: 
  Country: None (occurrence: None)
  Receive Date: 20080825
  Receipt Date: 20080825
  Transmission Date: 20090109
  Serious: Yes (Life-Threatening, Hospitalization)
  Sender: FDA-Public Use
  Company Number: None

PATIENT
  Age: 46 Year
  Sex: Male
  Weight: 104.3273 kg

DRUGS (1)
  1. DICLOFENAC SODIUM [Suspect]
     Indication: ARTHRITIS
     Dosage: 1 DAILY PO
     Route: 048
     Dates: start: 20020301, end: 20070708

REACTIONS (3)
  - GASTRIC HAEMORRHAGE [None]
  - HYPERTENSION [None]
  - MYOCARDIAL INFARCTION [None]
